FAERS Safety Report 12567030 (Version 1)
Quarter: 2016Q3

REPORT INFORMATION
  Report Type: Spontaneous
  Country: US (occurrence: US)
  Receive Date: 20160718
  Receipt Date: 20160718
  Transmission Date: 20161109
  Serious: Yes (Hospitalization)
  Sender: FDA-Public Use
  Company Number: US-BAYER-2016-137710

PATIENT
  Age: 49 Year
  Sex: Male
  Weight: 95.24 kg

DRUGS (2)
  1. BAYER ADVANCED ASPIRIN REGULAR STRENGTH [Concomitant]
     Active Substance: ASPIRIN
     Dosage: UNK DF, PRN
     Route: 048
  2. DR. SCHOLLS CLEAR AWAY WART REMOVER PLANTAR [Suspect]
     Active Substance: SALICYLIC ACID
     Indication: SKIN PAPILLOMA
     Dosage: 1 DF, UNK (ABOUT A WEEK)
     Route: 061
     Dates: start: 2016

REACTIONS (4)
  - Hypoaesthesia [Not Recovered/Not Resolved]
  - Hyperhidrosis [Not Recovered/Not Resolved]
  - Blood pressure increased [None]
  - Headache [Not Recovered/Not Resolved]

NARRATIVE: CASE EVENT DATE: 201606
